FAERS Safety Report 4638880-7 (Version None)
Quarter: 2005Q2

REPORT INFORMATION
  Report Type: 
  Country: None (occurrence: None)
  Receive Date: 20050419
  Receipt Date: 20050408
  Transmission Date: 20051028
  Serious: Yes (Other)
  Sender: FDA-Public Use
  Company Number: JP-JNJFOC-20050403035

PATIENT
  Age: 70 Year
  Sex: Male

DRUGS (6)
  1. RISPERIDONE [Suspect]
     Indication: DRUG USE FOR UNKNOWN INDICATION
     Route: 049
  2. NITRAZEPAM [Concomitant]
     Route: 049
  3. PIPSISSEWA EXTRACT [Concomitant]
     Route: 049
  4. TAMSULOSIN HCL [Concomitant]
     Route: 049
  5. CLARITHROMYCIN [Concomitant]
     Route: 049
  6. CLONAZEPAM [Concomitant]
     Route: 049

REACTIONS (3)
  - BRADYCARDIA [None]
  - DEPRESSED LEVEL OF CONSCIOUSNESS [None]
  - HYPOTHERMIA [None]
